FAERS Safety Report 7797453-8 (Version None)
Quarter: 2011Q4

REPORT INFORMATION
  Report Type: 
  Country: None (occurrence: None)
  Receive Date: 20111004
  Receipt Date: 20111004
  Transmission Date: 20120403
  Serious: Yes (Hospitalization)
  Sender: FDA-Public Use
  Company Number: None

PATIENT
  Age: 67 Year
  Sex: Male
  Weight: 128.6 kg

DRUGS (1)
  1. CEPHALEXIN [Suspect]
     Dosage: 500 MG BID PO
     Route: 048
     Dates: start: 20110606, end: 20110611

REACTIONS (3)
  - HEPATOSPLENOMEGALY [None]
  - HYPERBILIRUBINAEMIA [None]
  - BLOOD ALKALINE PHOSPHATASE INCREASED [None]
